FAERS Safety Report 8422398-X (Version None)
Quarter: 2012Q2

REPORT INFORMATION
  Report Type: 
  Country: None (occurrence: None)
  Receive Date: 20120608
  Receipt Date: 20120605
  Transmission Date: 20120825
  Serious: Yes (Hospitalization, Other)
  Sender: FDA-Public Use
  Company Number: PHHY2012BR048932

PATIENT
  Age: 73 Year
  Sex: Male

DRUGS (6)
  1. INDAPAMIDE [Concomitant]
     Dosage: 1.5 MG, UNK
  2. METFORMIN HCL [Concomitant]
     Dosage: 500 MG, UNK
  3. SOMALGIN CARDIO [Concomitant]
     Dosage: 325 MG, UNK
  4. EXFORGE [Suspect]
     Indication: HYPERTENSION
     Dosage: 1 DF (320/10 MG), A DAY
  5. SIMVASTATIN [Concomitant]
     Dosage: 40 MG, UNK
  6. ZETIA [Concomitant]
     Dosage: 10 MG, UNK

REACTIONS (7)
  - PNEUMONIA [None]
  - SECRETION DISCHARGE [None]
  - DYSPNOEA [None]
  - ASTHENIA [None]
  - COUGH [None]
  - FALL [None]
  - FEEDING DISORDER [None]
